FAERS Safety Report 8418979-X (Version None)
Quarter: 2012Q2

REPORT INFORMATION
  Report Type: 
  Country: None (occurrence: None)
  Receive Date: 20120607
  Receipt Date: 20120601
  Transmission Date: 20120825
  Serious: Yes (Death, Hospitalization, Other)
  Sender: FDA-Public Use
  Company Number: PHHY2012SV045940

PATIENT
  Sex: Female

DRUGS (4)
  1. GLEEVEC [Suspect]
     Dosage: 800 MG, UNK
     Dates: end: 20120401
  2. GLEEVEC [Suspect]
     Dosage: 300 MG, DAILY
  3. GLEEVEC [Suspect]
     Indication: CHRONIC MYELOID LEUKAEMIA
     Dosage: 400 MG, UNK
     Route: 048
     Dates: start: 20100701
  4. GLEEVEC [Suspect]
     Dosage: 400 MG, UNK

REACTIONS (10)
  - STATUS EPILEPTICUS [None]
  - PNEUMONIA [None]
  - PLATELET COUNT INCREASED [None]
  - TERMINAL STATE [None]
  - BLAST CRISIS IN MYELOGENOUS LEUKAEMIA [None]
  - LYMPHOCYTE COUNT INCREASED [None]
  - HAEMOGLOBIN DECREASED [None]
  - WHITE BLOOD CELL COUNT DECREASED [None]
  - THROMBOCYTOSIS [None]
  - RESPIRATORY TRACT INFECTION [None]
